FAERS Safety Report 20665145 (Version 1)
Quarter: 2022Q2

REPORT INFORMATION
  Report Type: Spontaneous
  Country: US (occurrence: None)
  Receive Date: 20220401
  Receipt Date: 20220401
  Transmission Date: 20220721
  Serious: Yes (Life-Threatening, Hospitalization, Congenital Anomaly, Other)
  Sender: FDA-Public Use
  Company Number: 2022A134064

PATIENT
  Sex: Female

DRUGS (7)
  1. SEROQUEL [Suspect]
     Active Substance: QUETIAPINE FUMARATE
     Indication: Sleep disorder
     Route: 048
  2. SEROQUEL [Suspect]
     Active Substance: QUETIAPINE FUMARATE
     Indication: Sleep disorder
     Route: 048
  3. SEROQUEL [Suspect]
     Active Substance: QUETIAPINE FUMARATE
     Indication: Sleep disorder
     Route: 048
  4. VALIUM [Concomitant]
     Active Substance: DIAZEPAM
     Route: 065
  5. XANAX [Concomitant]
     Active Substance: ALPRAZOLAM
     Route: 065
  6. ZOLOFT [Concomitant]
     Active Substance: SERTRALINE HYDROCHLORIDE
     Route: 065
  7. KLONOPIN [Concomitant]
     Active Substance: CLONAZEPAM
     Route: 065

REACTIONS (22)
  - Suicide attempt [Recovered/Resolved]
  - Exposure during pregnancy [Unknown]
  - Foetal death [Unknown]
  - Homicidal ideation [Recovered/Resolved]
  - Suicidal ideation [Unknown]
  - Bipolar disorder [Unknown]
  - Post-traumatic stress disorder [Not Recovered/Not Resolved]
  - Road traffic accident [Unknown]
  - Abnormal behaviour [Recovered/Resolved]
  - Hypersomnia [Recovered/Resolved]
  - Thinking abnormal [Unknown]
  - Insomnia [Recovered/Resolved]
  - Vomiting [Unknown]
  - Oral candidiasis [Unknown]
  - Neurotransmitter level altered [Unknown]
  - Migraine [Unknown]
  - Premature menopause [Not Recovered/Not Resolved]
  - Polymenorrhoea [Unknown]
  - Hot flush [Not Recovered/Not Resolved]
  - Amnesia [Not Recovered/Not Resolved]
  - Constipation [Not Recovered/Not Resolved]
  - Abdominal pain upper [Not Recovered/Not Resolved]
